FAERS Safety Report 10666305 (Version 1)
Quarter: 2014Q4

REPORT INFORMATION
  Report Type: Spontaneous
  Country: DE (occurrence: DE)
  Receive Date: 20141220
  Receipt Date: 20141220
  Transmission Date: 20150529
  Serious: Yes (Hospitalization)
  Sender: FDA-Public Use
  Company Number: GXKR2014DE004725

PATIENT

DRUGS (6)
  1. CIPRALEX//ESCITALOPRAM OXALATE [Concomitant]
  2. PANTOZOL [Concomitant]
     Active Substance: PANTOPRAZOLE SODIUM
  3. VOLTAREN RESINAT [Concomitant]
     Active Substance: DICLOFENAC
  4. CLOZAPINE. [Suspect]
     Active Substance: CLOZAPINE
  5. HALDOL [Concomitant]
     Active Substance: HALOPERIDOL
  6. SOLIAN [Concomitant]
     Active Substance: AMISULPRIDE

REACTIONS (4)
  - Pyrexia [Recovered/Resolved]
  - Thrombophlebitis [Recovered/Resolved]
  - Eosinophilia [Recovered/Resolved]
  - Diarrhoea [Recovered/Resolved]

NARRATIVE: CASE EVENT DATE: 20090622
